FAERS Safety Report 6660620-0 (Version None)
Quarter: 2010Q1

REPORT INFORMATION
  Report Type: 
  Country: None (occurrence: None)
  Receive Date: 20100331
  Receipt Date: 20100322
  Transmission Date: 20100710
  Serious: Yes (Other)
  Sender: FDA-Public Use
  Company Number: GB-ASTRAZENECA-2010SE12479

PATIENT
  Sex: Male

DRUGS (8)
  1. NEXIUM [Suspect]
     Route: 048
  2. RANITIDINE [Interacting]
     Route: 065
  3. MOTILIUM [Interacting]
     Route: 065
  4. EDRONAX [Interacting]
     Indication: DEPRESSION
     Route: 065
     Dates: start: 20100223
  5. DOXAZOSIN MESYLATE [Interacting]
     Route: 065
  6. COLOFAC [Interacting]
     Indication: IRRITABLE BOWEL SYNDROME
     Route: 065
  7. BISOPROLOL [Interacting]
     Route: 065
  8. BENDROFLUMETHIAZIDE [Interacting]
     Route: 065

REACTIONS (3)
  - DRUG INTERACTION [None]
  - FATIGUE [None]
  - SEDATION [None]
